FAERS Safety Report 9661902 (Version 1)
Quarter: 2013Q4

REPORT INFORMATION
  Report Type: Spontaneous
  Country: US (occurrence: US)
  Receive Date: 20131031
  Receipt Date: 20131031
  Transmission Date: 20140711
  Serious: Yes (Other)
  Sender: FDA-Public Use
  Company Number: US-NAPPMUNDI-USA-2011-0067092

PATIENT
  Age: 12 Year
  Sex: Female

DRUGS (1)
  1. OXYCONTIN (NDA 22-272) [Suspect]
     Indication: DRUG ABUSE

REACTIONS (6)
  - Drug abuse [Unknown]
  - Abnormal behaviour [Unknown]
  - Drooling [Unknown]
  - Eyelid ptosis [Unknown]
  - Dysarthria [Unknown]
  - Somnolence [Unknown]
